FAERS Safety Report 5675493-2 (Version None)
Quarter: 2008Q2

REPORT INFORMATION
  Report Type: 
  Country: None (occurrence: None)
  Receive Date: 20080313
  Receipt Date: 20070419
  Transmission Date: 20081010
  Serious: Yes (Hospitalization)
  Sender: FDA-Public Use
  Company Number: 1-0407-01

PATIENT
  Age: 2 Year
  Sex: Female

DRUGS (1)
  1. DERMA-SMOOTHE/FS [Suspect]
     Dosage: TOPICAL
     Route: 061

REACTIONS (1)
  - HYPERSENSITIVITY [None]
